FAERS Safety Report 5588783-9 (Version None)
Quarter: 2008Q1

REPORT INFORMATION
  Report Type: 
  Country: None (occurrence: None)
  Receive Date: 20080111
  Receipt Date: 20080110
  Transmission Date: 20080703
  Serious: Yes (Death, Hospitalization)
  Sender: FDA-Public Use
  Company Number: B0502264A

PATIENT
  Age: 26 Year
  Sex: Female
  Weight: 56 kg

DRUGS (9)
  1. ALKERAN [Suspect]
     Indication: CORD BLOOD TRANSPLANT THERAPY
     Dosage: 60MGM2 PER DAY
     Route: 042
     Dates: start: 20020313, end: 20020315
  2. BUSULFAN [Concomitant]
     Indication: CORD BLOOD TRANSPLANT THERAPY
     Dosage: 4MGK PER DAY
     Route: 048
     Dates: start: 20020309, end: 20020312
  3. GRAN [Concomitant]
     Dates: start: 20020404, end: 20020416
  4. TACROLIMUS HYDRATE [Concomitant]
     Indication: IMMUNOSUPPRESSION
     Dosage: .03MGK PER DAY
     Route: 065
     Dates: start: 20020317, end: 20020417
  5. ALOSITOL [Concomitant]
     Dosage: 100MG PER DAY
     Route: 048
     Dates: start: 20020301, end: 20020319
  6. GASTER [Concomitant]
     Dosage: 40MG PER DAY
     Route: 048
     Dates: start: 20020301, end: 20020417
  7. CRAVIT [Concomitant]
     Dosage: 300MG PER DAY
     Route: 048
     Dates: start: 20020310, end: 20020320
  8. DIFLUCAN [Concomitant]
     Dosage: 200MG PER DAY
     Route: 048
     Dates: start: 20020310, end: 20020417
  9. ZOVIRAX [Concomitant]
     Dosage: 1000MG PER DAY
     Route: 048
     Dates: start: 20020310, end: 20020417

REACTIONS (2)
  - HEPATIC FAILURE [None]
  - PLEURISY [None]
